FAERS Safety Report 22210575 (Version 2)
Quarter: 2023Q2

REPORT INFORMATION
  Report Type: Report from Study
  Country: ES (occurrence: ES)
  Receive Date: 20230414
  Receipt Date: 20230417
  Transmission Date: 20230721
  Serious: Yes (Other)
  Sender: FDA-Public Use
  Company Number: ES-ABBVIE-4726141

PATIENT
  Sex: Female

DRUGS (2)
  1. CARBIDOPA\LEVODOPA [Suspect]
     Active Substance: CARBIDOPA\LEVODOPA
     Indication: Parkinson^s disease
     Route: 050
     Dates: start: 20210628
  2. CARBIDOPA\LEVODOPA [Suspect]
     Active Substance: CARBIDOPA\LEVODOPA

REACTIONS (7)
  - Catatonia [Not Recovered/Not Resolved]
  - Unevaluable event [Unknown]
  - Gait inability [Unknown]
  - Muscle rigidity [Not Recovered/Not Resolved]
  - Therapeutic product effect incomplete [Unknown]
  - Depressed mood [Unknown]
  - Depression [Unknown]

NARRATIVE: CASE EVENT DATE: 20230101
